FAERS Safety Report 15359266 (Version 2)
Quarter: 2018Q3

REPORT INFORMATION
  Report Type: Spontaneous
  Country: IT (occurrence: IT)
  Receive Date: 20180907
  Receipt Date: 20180927
  Transmission Date: 20181010
  Serious: Yes (Other)
  Sender: FDA-Public Use
  Company Number: PHHY2018IT092282

PATIENT
  Age: 66 Year
  Sex: Female

DRUGS (1)
  1. LEVOFLOXACIN. [Suspect]
     Active Substance: LEVOFLOXACIN
     Indication: NASOPHARYNGITIS
     Dosage: UNK
     Route: 048

REACTIONS (3)
  - Erythema [Recovering/Resolving]
  - Rash maculo-papular [Recovering/Resolving]
  - Acute respiratory failure [Unknown]

NARRATIVE: CASE EVENT DATE: 20180728
